FAERS Safety Report 8942711 (Version 1)
Quarter: 2012Q4

REPORT INFORMATION
  Report Type: 
  Country: CA (occurrence: CA)
  Receive Date: 20121204
  Receipt Date: 20121204
  Transmission Date: 20130627
  Serious: Yes (Other)
  Sender: FDA-Public Use
  Company Number: CA-PFIZER INC-2012263710

PATIENT
  Age: 53 Year
  Sex: Male
  Weight: 96.15 kg

DRUGS (6)
  1. INLYTA [Suspect]
     Indication: METASTATIC RENAL CELL CARCINOMA
     Dosage: 5 mg, 2x/day
     Route: 048
     Dates: start: 201207, end: 201208
  2. INLYTA [Suspect]
     Dosage: 7 mg, 2x/day
     Route: 048
     Dates: start: 201208, end: 201209
  3. INLYTA [Suspect]
     Dosage: 3 mg, 2x/day
     Route: 048
     Dates: start: 2012
  4. ALLOPURINOL [Concomitant]
     Indication: GOUT
     Dosage: 1x/day
  5. ASA [Concomitant]
     Indication: CARDIOVASCULAR EVENT PROPHYLAXIS
     Dosage: 80 mg, 1x/day
  6. OXYCOCET [Concomitant]
     Indication: PAIN
     Dosage: as needed at night

REACTIONS (5)
  - Renal failure acute [Not Recovered/Not Resolved]
  - Disease progression [Not Recovered/Not Resolved]
  - Metastatic renal cell carcinoma [Not Recovered/Not Resolved]
  - Vomiting [Not Recovered/Not Resolved]
  - Weight decreased [Not Recovered/Not Resolved]
